FAERS Safety Report 4820868-4 (Version None)
Quarter: 2005Q4

REPORT INFORMATION
  Report Type: 
  Country: None (occurrence: None)
  Receive Date: 20051103
  Receipt Date: 20051101
  Transmission Date: 20060501
  Serious: Yes (Disabling)
  Sender: FDA-Public Use
  Company Number: THQ2005A00923

PATIENT
  Age: 77 Year
  Sex: Male

DRUGS (6)
  1. LEUPROLIDE ACETATE [Suspect]
     Indication: PROSTATE CANCER
     Route: 030
     Dates: start: 20051004
  2. OMEPRAZOLE [Concomitant]
  3. RISEDRONATE SODIUM [Concomitant]
  4. ENALAPRIL [Concomitant]
  5. CALCIUM CARBONATE [Concomitant]
  6. PROCHLORPERAZINE [Concomitant]

REACTIONS (6)
  - CONDITION AGGRAVATED [None]
  - DIPLOPIA [None]
  - EYE SWELLING [None]
  - EYELID PTOSIS [None]
  - HEADACHE [None]
  - NAUSEA [None]
